FAERS Safety Report 18376290 (Version 2)
Quarter: 2020Q4

REPORT INFORMATION
  Report Type: Report from Study
  Country: US (occurrence: US)
  Receive Date: 20201013
  Receipt Date: 20201014
  Transmission Date: 20210114
  Serious: Yes (Death)
  Sender: FDA-Public Use
  Company Number: US-PFIZER INC-2020390403

PATIENT
  Age: 46 Year
  Sex: Female

DRUGS (7)
  1. THIOTEPA. [Suspect]
     Active Substance: THIOTEPA
     Indication: BREAST CANCER
     Dosage: 500 MG/M2, CYCLIC (CONTINUOUS INFUSION OVER 96 HOURS)
  2. MESNA. [Concomitant]
     Active Substance: MESNA
     Dosage: 7500 MG/M2 (120H CONTINUOUS INFUSION)
  3. TAMOXIFEN [Concomitant]
     Active Substance: TAMOXIFEN
     Dosage: 10 MG, 2X/DAY
     Route: 048
  4. DOXORUBICIN HCL [Suspect]
     Active Substance: DOXORUBICIN HYDROCHLORIDE
     Indication: BREAST CANCER
     Dosage: 30 MG/M2, CYCLIC (30 MG/M2/ D OVER 30 MIN INTRAVENOUSLY FOR 3 DAYS, EVERY 2 WEEKS)
     Route: 042
  5. CYCLOPHOSPHAMIDE. [Suspect]
     Active Substance: CYCLOPHOSPHAMIDE
     Indication: BREAST CANCER
     Dosage: 6000 MG/M2, CYCLIC (CONTINUOUS INFUSION OVER 96 HOURS)
  6. CARBOPLATIN. [Suspect]
     Active Substance: CARBOPLATIN
     Indication: BREAST CANCER
     Dosage: 800 MG/M2, CYCLIC (CONTINUOUS INFUSION OVER 96 HOURS)
  7. G-CSF [Concomitant]
     Active Substance: GRANULOCYTE COLONY-STIMULATING FACTOR NOS
     Dosage: 5 UG/KG/D, CYCLIC (FROM DAYS 4-12 POSTDOXORUBICIN, CYCLES REPEATED EVERY 2 WEEKS)

REACTIONS (2)
  - Cardiopulmonary failure [Fatal]
  - Multiple organ dysfunction syndrome [Fatal]
